FAERS Safety Report 25006277 (Version 1)
Quarter: 2025Q1

REPORT INFORMATION
  Report Type: Report from Study
  Country: US (occurrence: US)
  Receive Date: 20250224
  Receipt Date: 20250224
  Transmission Date: 20250409
  Serious: Yes (Other)
  Sender: ABBVIE
  Company Number: US-ABBVIE-6142633

PATIENT
  Sex: Female

DRUGS (1)
  1. SKYRIZI [Suspect]
     Active Substance: RISANKIZUMAB-RZAA
     Indication: Crohn^s disease
     Route: 058
     Dates: start: 20240530

REACTIONS (7)
  - Surgery [Recovering/Resolving]
  - Adhesion [Unknown]
  - Obstruction [Unknown]
  - Limb discomfort [Unknown]
  - Pharyngitis streptococcal [Unknown]
  - Pain [Unknown]
  - Illness [Recovering/Resolving]
